FAERS Safety Report 7309273-9 (Version None)
Quarter: 2011Q1

REPORT INFORMATION
  Report Type: 
  Country: None (occurrence: None)
  Receive Date: 20110223
  Receipt Date: 20110217
  Transmission Date: 20110831
  Serious: Yes (Other)
  Sender: FDA-Public Use
  Company Number: US-PFIZER INC-2011031220

PATIENT

DRUGS (3)
  1. DOXAZOSIN MESILATE [Suspect]
     Dosage: UNK
  2. METOPROLOL TARTRATE [Suspect]
     Dosage: UNK
  3. VERAPAMIL HCL [Suspect]
     Dosage: UNK

REACTIONS (3)
  - BLOOD PRESSURE FLUCTUATION [None]
  - ATRIAL FIBRILLATION [None]
  - DRUG INEFFECTIVE [None]
